FAERS Safety Report 9097365 (Version 3)
Quarter: 2013Q2

REPORT INFORMATION
  Report Type: Spontaneous
  Country: US (occurrence: US)
  Receive Date: 20130212
  Receipt Date: 20130405
  Transmission Date: 20140414
  Serious: Yes (Other)
  Sender: FDA-Public Use
  Company Number: US-PFIZER INC-2013052432

PATIENT
  Age: 61 Year
  Sex: Female
  Weight: 59 kg

DRUGS (1)
  1. PREMPRO [Suspect]
     Indication: PREMATURE MENOPAUSE
     Dosage: 0.625 MG/2.5 MG,1X/DAY
     Route: 048
     Dates: start: 1990

REACTIONS (6)
  - Breast mass [Not Recovered/Not Resolved]
  - Breast swelling [Not Recovered/Not Resolved]
  - Asthma [Recovered/Resolved]
  - Breast pain [Recovered/Resolved]
  - Skin discolouration [Recovered/Resolved]
  - Headache [Recovered/Resolved]
